FAERS Safety Report 9897288 (Version 3)
Quarter: 2014Q1

REPORT INFORMATION
  Report Type: Spontaneous
  Country: JP (occurrence: JP)
  Receive Date: 20140214
  Receipt Date: 20140227
  Transmission Date: 20141002
  Serious: Yes (Other)
  Sender: FDA-Public Use
  Company Number: JP-ASTRAZENECA-2014SE07134

PATIENT
  Age: 21 Year
  Sex: Male

DRUGS (4)
  1. NEXIUM [Suspect]
     Indication: HELICOBACTER INFECTION
     Route: 048
     Dates: start: 20140108, end: 20140115
  2. SAWACILLIN [Suspect]
     Indication: HELICOBACTER INFECTION
     Route: 065
     Dates: start: 20140108, end: 20140115
  3. CLARITH [Suspect]
     Indication: HELICOBACTER INFECTION
     Route: 065
     Dates: start: 20140108, end: 20140115
  4. BIO-THREE [Suspect]
     Route: 065
     Dates: start: 20140108, end: 20140115

REACTIONS (2)
  - Generalised erythema [Recovered/Resolved]
  - Intentional drug misuse [Unknown]
